FAERS Safety Report 10174568 (Version 1)
Quarter: 2014Q2

REPORT INFORMATION
  Report Type: Spontaneous
  Country: NZ (occurrence: NZ)
  Receive Date: 20140515
  Receipt Date: 20140515
  Transmission Date: 20141212
  Serious: Yes (Other)
  Sender: FDA-Public Use
  Company Number: NZ-ACTAVIS-2014-10314

PATIENT
  Age: 24 Year
  Sex: Female

DRUGS (2)
  1. FLUOXETINE HYDROCHLORIDE (UNKNOWN) [Suspect]
     Indication: DEPRESSION
     Dosage: 60 MG, DAILY
     Route: 065
  2. NORTRIPTYLINE HYDROCHLORIDE (WATSON LABORATORIES) [Interacting]
     Indication: DEPRESSION
     Dosage: 75 MG, DAILY
     Route: 065

REACTIONS (3)
  - Dry mouth [Recovered/Resolved]
  - Drug level above therapeutic [Recovered/Resolved]
  - Drug interaction [Recovered/Resolved]
